FAERS Safety Report 15790677 (Version 1)
Quarter: 2019Q1

REPORT INFORMATION
  Report Type: Spontaneous
  Country: US (occurrence: US)
  Receive Date: 20190104
  Receipt Date: 20190104
  Transmission Date: 20190417
  Serious: Yes (Death)
  Sender: FDA-Public Use
  Company Number: US-BAYER-2019-003309

PATIENT
  Age: 38 Year
  Sex: Male

DRUGS (2)
  1. D-METHAMPHETAMINE [Suspect]
     Active Substance: METHAMPHETAMINE
  2. CHLORPHENIRAMINE MALEATE. [Suspect]
     Active Substance: CHLORPHENIRAMINE MALEATE

REACTIONS (2)
  - Toxicity to various agents [Fatal]
  - Drug abuse [Fatal]
